FAERS Safety Report 4503533-2 (Version None)
Quarter: 2004Q4

REPORT INFORMATION
  Report Type: 
  Country: None (occurrence: None)
  Receive Date: 20041115
  Receipt Date: 20041102
  Transmission Date: 20050328
  Serious: Yes (Other)
  Sender: FDA-Public Use
  Company Number: 2004076699

PATIENT
  Age: 3 Year
  Sex: Male
  Weight: 14.5 kg

DRUGS (2)
  1. ATARAX [Suspect]
     Indication: DERMATITIS ATOPIC
     Dosage: 34 MG (34 MG, 1 IN 1 D)
     Route: 048
     Dates: start: 20040828, end: 20041003
  2. KETOTIFEN [Suspect]
     Indication: ILL-DEFINED DISORDER

REACTIONS (2)
  - FEBRILE CONVULSION [None]
  - NASOPHARYNGITIS [None]
